FAERS Safety Report 7765559-5 (Version None)
Quarter: 2011Q3

REPORT INFORMATION
  Report Type: 
  Country: None (occurrence: None)
  Receive Date: 20110921
  Receipt Date: 20110908
  Transmission Date: 20111222
  Serious: Yes (Other)
  Sender: FDA-Public Use
  Company Number: PHEH2009US13601

PATIENT
  Sex: Female

DRUGS (7)
  1. ZOMETA [Suspect]
     Indication: MULTIPLE MYELOMA
     Dosage: UNK
  2. ENALAPRIL MALEATE [Concomitant]
  3. FENTANYL [Concomitant]
  4. VELCADE [Concomitant]
  5. OXYCODONE HCL [Concomitant]
  6. NORVASC [Concomitant]
  7. NEURONTIN [Concomitant]

REACTIONS (29)
  - INJURY [None]
  - INFLAMMATORY BOWEL DISEASE [None]
  - RESTLESS LEGS SYNDROME [None]
  - EXOSTOSIS [None]
  - AORTIC CALCIFICATION [None]
  - CATARACT [None]
  - DISABILITY [None]
  - EXPOSED BONE IN JAW [None]
  - RECTAL HAEMORRHAGE [None]
  - PAIN [None]
  - OSTEITIS [None]
  - FALL [None]
  - ANHEDONIA [None]
  - CELLULITIS [None]
  - ANAL FISSURE [None]
  - URINARY TRACT INFECTION [None]
  - INTESTINAL ISCHAEMIA [None]
  - CONSTIPATION [None]
  - TOOTH ABSCESS [None]
  - DEEP VEIN THROMBOSIS [None]
  - PAIN IN EXTREMITY [None]
  - OSTEONECROSIS OF JAW [None]
  - NEUROPATHY PERIPHERAL [None]
  - DYSPNOEA [None]
  - ANXIETY [None]
  - ANAEMIA [None]
  - DEPRESSION [None]
  - DIVERTICULUM [None]
  - HERPES ZOSTER [None]
